FAERS Safety Report 5054799-4 (Version None)
Quarter: 2006Q3

REPORT INFORMATION
  Report Type: 
  Country: None (occurrence: None)
  Receive Date: 20060719
  Receipt Date: 20060709
  Transmission Date: 20061208
  Serious: Yes (Hospitalization)
  Sender: FDA-Public Use
  Company Number: 2006UW14433

PATIENT
  Age: 60 Year
  Sex: Female

DRUGS (5)
  1. PRILOSEC [Suspect]
     Indication: DYSPEPSIA
     Route: 048
  2. PRILOSEC [Suspect]
     Indication: FLATULENCE
     Route: 048
  3. PRILOSEC [Suspect]
     Indication: VOMITING
     Route: 048
  4. ACETAMINOPHEN [Concomitant]
     Indication: HEADACHE
  5. ACETAMINOPHEN [Concomitant]
     Indication: NASOPHARYNGITIS

REACTIONS (1)
  - JAUNDICE [None]
